FAERS Safety Report 11232838 (Version 1)
Quarter: 2015Q3

REPORT INFORMATION
  Report Type: Spontaneous
  Country: US (occurrence: US)
  Receive Date: 20150701
  Receipt Date: 20150701
  Transmission Date: 20151125
  Serious: No
  Sender: FDA-Public Use
  Company Number: US-ELI_LILLY_AND_COMPANY-USA030332223

PATIENT
  Age: 7 Year
  Sex: Female
  Weight: 27.73 kg

DRUGS (2)
  1. HUMULIN U [Suspect]
     Active Substance: INSULIN HUMAN
     Indication: TYPE 1 DIABETES MELLITUS
     Dosage: UNK
     Route: 065
     Dates: start: 200303, end: 200306
  2. HUMALOG [Suspect]
     Active Substance: INSULIN LISPRO
     Indication: TYPE 1 DIABETES MELLITUS
     Dosage: UNK
     Route: 065
     Dates: start: 200303, end: 200306

REACTIONS (4)
  - Injection site rash [Recovered/Resolved]
  - Injection site urticaria [Unknown]
  - Injection site erythema [Unknown]
  - Tenderness [Unknown]

NARRATIVE: CASE EVENT DATE: 2003
